FAERS Safety Report 10221265 (Version 1)
Quarter: 2014Q2

REPORT INFORMATION
  Report Type: Spontaneous
  Country: US (occurrence: US)
  Receive Date: 20140606
  Receipt Date: 20140606
  Transmission Date: 20141212
  Serious: No
  Sender: FDA-Public Use
  Company Number: US-GLAXOSMITHKLINE-A1069449A

PATIENT
  Age: 61 Year
  Sex: Female

DRUGS (11)
  1. BREO ELLIPTA [Suspect]
     Indication: CHRONIC OBSTRUCTIVE PULMONARY DISEASE
     Dosage: 1PUFF PER DAY
     Route: 055
     Dates: start: 201310
  2. AZITHROMYCIN [Concomitant]
  3. DILAUDID [Concomitant]
  4. ACTIQ [Concomitant]
  5. TIZANIDINE [Concomitant]
  6. TUDORZA [Concomitant]
  7. LOVASTATIN [Concomitant]
  8. DALIRESP [Concomitant]
  9. LISINOPRIL [Concomitant]
  10. SPIRONOLACTONE [Concomitant]
  11. INFUSION [Concomitant]

REACTIONS (1)
  - Abnormal dreams [Unknown]
